FAERS Safety Report 9707046 (Version 1)
Quarter: 2013Q4

REPORT INFORMATION
  Report Type: Spontaneous
  Country: US (occurrence: US)
  Receive Date: 20131125
  Receipt Date: 20131125
  Transmission Date: 20140711
  Serious: No
  Sender: FDA-Public Use
  Company Number: US-PFIZER INC-2013336105

PATIENT
  Sex: Female

DRUGS (4)
  1. ZOLOFT [Suspect]
     Indication: DEPRESSION
     Dosage: 200 MG, UNK
  2. ZOLOFT [Suspect]
     Dosage: 100 MG, UNK
  3. PRISTIQ [Suspect]
     Indication: DEPRESSION
     Dosage: 50 MG, UNK
     Dates: start: 201311
  4. OXAZEPAM [Concomitant]
     Indication: ANXIETY
     Dosage: UNK

REACTIONS (2)
  - Drug ineffective [Unknown]
  - Anxiety [Unknown]
